FAERS Safety Report 13148964 (Version 1)
Quarter: 2017Q1

REPORT INFORMATION
  Report Type: Spontaneous
  Country: US (occurrence: US)
  Receive Date: 20170124
  Receipt Date: 20170124
  Transmission Date: 20170428
  Serious: No
  Sender: FDA-Public Use
  Company Number: None

PATIENT
  Age: 45 Year
  Sex: Male

DRUGS (1)
  1. HUMIRA [Suspect]
     Active Substance: ADALIMUMAB
     Indication: CROHN^S DISEASE
     Dosage: 4 PENS (160MG)  1ST DOSE
     Route: 058
     Dates: start: 20170110

REACTIONS (5)
  - Injection site pruritus [None]
  - Injection site irritation [None]
  - Condition aggravated [None]
  - Injection site erythema [None]
  - Drug ineffective [None]

NARRATIVE: CASE EVENT DATE: 20170110
